FAERS Safety Report 4279419-8 (Version None)
Quarter: 2004Q1

REPORT INFORMATION
  Report Type: 
  Country: None (occurrence: None)
  Receive Date: 20040127
  Receipt Date: 20040119
  Transmission Date: 20041129
  Serious: Yes (Other)
  Sender: FDA-Public Use
  Company Number: WAES 0401USA01417

PATIENT
  Age: 63 Year
  Sex: Female

DRUGS (2)
  1. FOSAMAX [Suspect]
     Route: 048
     Dates: end: 20030801
  2. FOSAMAX [Suspect]
     Route: 048
     Dates: start: 20031020, end: 20040101

REACTIONS (2)
  - BLOOD CALCITONIN INCREASED [None]
  - THYROID NEOPLASM [None]
